FAERS Safety Report 4658677-1 (Version None)
Quarter: 2005Q2

REPORT INFORMATION
  Report Type: 
  Country: None (occurrence: None)
  Receive Date: 20050511
  Receipt Date: 20041202
  Transmission Date: 20051028
  Serious: Yes (Death, Hospitalization, Other)
  Sender: FDA-Public Use
  Company Number: PHEH2004US12965

PATIENT
  Age: 79 Year
  Sex: Male

DRUGS (31)
  1. EPOETIN ALFA [Concomitant]
     Dosage: 40000 U UNK
     Dates: start: 20020926
  2. LEUPROLIDE ACETATE [Concomitant]
     Dosage: UNK, UNK
     Dates: start: 19970127, end: 20031128
  3. DOCETAXEL [Concomitant]
     Dosage: 58MG UNK
     Dates: start: 20030103
  4. ZOMETA [Suspect]
     Indication: PROSTATE CANCER
     Dosage: 4 MG (FREQUENCY UNSPECIFIED)
     Route: 042
     Dates: start: 20021220, end: 20040701
  5. LASIX [Concomitant]
  6. VASOTEC [Concomitant]
  7. FLEET MINERAL OIL ENEMA [Concomitant]
  8. ATIVAN [Concomitant]
  9. MORPHINE [Concomitant]
  10. ULTRAM [Concomitant]
  11. ZOSYN [Concomitant]
  12. MIOREL [Concomitant]
  13. DURAGESIC-100 [Concomitant]
  14. SYNTHROID [Concomitant]
  15. LOVENOX [Concomitant]
  16. MICRONASE [Concomitant]
  17. LOPRESSOR [Concomitant]
  18. NOVOLIN [Concomitant]
  19. GLYBURIDE [Concomitant]
  20. ISOSORBIDE [Concomitant]
  21. PLAVIX [Concomitant]
  22. LEXAPRO [Concomitant]
  23. RITALIN [Concomitant]
  24. ZOCOR [Concomitant]
  25. OXYCODONE HCL [Concomitant]
  26. PREDNISONE TAB [Concomitant]
  27. FLOMAX [Concomitant]
  28. MEGESTROL [Concomitant]
  29. GLYCOLAX [Concomitant]
  30. NEXIUM [Concomitant]
  31. SODIUM CHLORIDE [Concomitant]

REACTIONS (25)
  - ABSCESS [None]
  - ABSCESS DRAINAGE [None]
  - ATRIAL FIBRILLATION [None]
  - BONE DEBRIDEMENT [None]
  - BONE DISORDER [None]
  - CARDIO-RESPIRATORY ARREST [None]
  - CELLULITIS [None]
  - CEREBRAL HAEMORRHAGE [None]
  - DENTAL OPERATION [None]
  - HEADACHE [None]
  - JAW OPERATION [None]
  - LETHARGY [None]
  - MALIGNANT NEOPLASM PROGRESSION [None]
  - MOUTH ULCERATION [None]
  - OSTEOLYSIS [None]
  - OSTEOMYELITIS [None]
  - OSTEONECROSIS [None]
  - PAIN [None]
  - PATHOLOGICAL FRACTURE [None]
  - RESPIRATORY THERAPY [None]
  - SEPSIS [None]
  - SEQUESTRECTOMY [None]
  - SWELLING [None]
  - TOOTH EXTRACTION [None]
  - TOOTH INFECTION [None]
